FAERS Safety Report 5532387-0 (Version None)
Quarter: 2007Q4

REPORT INFORMATION
  Report Type: 
  Country: None (occurrence: None)
  Receive Date: 20071203
  Receipt Date: 20071128
  Transmission Date: 20080405
  Serious: Yes (Other)
  Sender: FDA-Public Use
  Company Number: TW-ROXANE LABORATORIES, INC-2007-BP-25181RO

PATIENT
  Age: 28 Year
  Sex: Female

DRUGS (3)
  1. METHOTREXATE [Suspect]
     Indication: DERMATOMYOSITIS
     Route: 048
     Dates: start: 20040401, end: 20041001
  2. HYDROXYCHLOROQUINE SULFATE [Suspect]
     Indication: DERMATOMYOSITIS
     Dates: start: 20040401, end: 20040501
  3. PREDNISOLONE [Suspect]
     Indication: DERMATOMYOSITIS
     Dates: start: 20040501, end: 20041001

REACTIONS (2)
  - DRUG INEFFECTIVE [None]
  - FIBROUS HISTIOCYTOMA [None]
